FAERS Safety Report 10991856 (Version 3)
Quarter: 2015Q2

REPORT INFORMATION
  Report Type: Report from Study
  Country: BE (occurrence: BE)
  Receive Date: 20150406
  Receipt Date: 20150629
  Transmission Date: 20150821
  Serious: Yes (Hospitalization)
  Sender: FDA-Public Use
  Company Number: BE-ABBVIE-15P-013-1369492-00

PATIENT
  Age: 70 Year
  Sex: Male

DRUGS (4)
  1. DUODOPA [Suspect]
     Active Substance: CARBIDOPA\LEVODOPA
     Dosage: AM DOSE=9.5ML, CD=4.4ML/H FOR 16HRS AND ED=3ML
     Route: 050
     Dates: start: 20140429, end: 201503
  2. DUODOPA [Suspect]
     Active Substance: CARBIDOPA\LEVODOPA
     Dosage: AM DOSE=10.5ML, CD=5.2ML/H FOR 16HRS AND ED=6ML
     Route: 050
     Dates: start: 20090701, end: 20100428
  3. DUODOPA [Suspect]
     Active Substance: CARBIDOPA\LEVODOPA
     Dosage: DOSAGE CONTINUOUSLY MONITORED AND ADJUSTED
     Route: 050
     Dates: start: 20100428, end: 20140429
  4. DUODOPA [Suspect]
     Active Substance: CARBIDOPA\LEVODOPA
     Indication: PARKINSON^S DISEASE
     Route: 050
     Dates: start: 20070921, end: 20090701

REACTIONS (4)
  - Device dislocation [Unknown]
  - Abdominal wall abscess [Unknown]
  - Stoma site discharge [Unknown]
  - Subcutaneous abscess [Unknown]

NARRATIVE: CASE EVENT DATE: 201503
